FAERS Safety Report 24466620 (Version 4)
Quarter: 2025Q1

REPORT INFORMATION
  Report Type: Report from Study
  Country: US (occurrence: US)
  Receive Date: 20241018
  Receipt Date: 20250113
  Transmission Date: 20250409
  Serious: Yes (Hospitalization, Other)
  Sender: REGENERON
  Company Number: US-Regeneron Pharmaceuticals, INC- 2024-121854

PATIENT
  Sex: Male

DRUGS (2)
  1. CEMIPLIMAB [Suspect]
     Active Substance: CEMIPLIMAB
     Indication: Squamous cell carcinoma of skin
     Dates: start: 20240122
  2. NEXIUM [Concomitant]
     Active Substance: ESOMEPRAZOLE MAGNESIUM
     Indication: Product used for unknown indication

REACTIONS (19)
  - Rash pruritic [Recovered/Resolved]
  - Brain fog [Unknown]
  - Fall [Unknown]
  - Hand fracture [Unknown]
  - Tooth injury [Unknown]
  - Adverse event [Unknown]
  - Balance disorder [Not Recovered/Not Resolved]
  - Asthenia [Recovering/Resolving]
  - Dysstasia [Recovering/Resolving]
  - Myalgia [Not Recovered/Not Resolved]
  - Fatigue [Not Recovered/Not Resolved]
  - Asthenia [Unknown]
  - Headache [Recovered/Resolved]
  - Lethargy [Unknown]
  - Dizziness [Recovered/Resolved]
  - Pain [Unknown]
  - Hypersomnia [Unknown]
  - Feeling abnormal [Unknown]
  - Drug ineffective [Unknown]

NARRATIVE: CASE EVENT DATE: 20240930
